FAERS Safety Report 6095126-3 (Version None)
Quarter: 2009Q1

REPORT INFORMATION
  Report Type: 
  Country: None (occurrence: None)
  Receive Date: 20090227
  Receipt Date: 20080125
  Transmission Date: 20090719
  Serious: No
  Sender: FDA-Public Use
  Company Number: A0705471A

PATIENT
  Sex: Male

DRUGS (2)
  1. LAMICTAL [Suspect]
     Indication: EPILEPSY
     Dosage: 800MG TWICE PER DAY
     Route: 048
  2. DILANTIN [Concomitant]

REACTIONS (2)
  - ATAXIA [None]
  - DIPLOPIA [None]
